FAERS Safety Report 16491884 (Version 1)
Quarter: 2019Q3

REPORT INFORMATION
  Report Type: Spontaneous
  Country: US (occurrence: US)
  Receive Date: 20190627
  Receipt Date: 20190627
  Transmission Date: 20191004
  Serious: Yes (Hospitalization, Disabling)
  Sender: FDA-Public Use
  Company Number: None

PATIENT
  Age: 43 Year
  Sex: Female
  Weight: 63.5 kg

DRUGS (6)
  1. LOPRESSOR [Suspect]
     Active Substance: METOPROLOL TARTRATE
  2. PROMETHAZINE [Suspect]
     Active Substance: PROMETHAZINE HYDROCHLORIDE
  3. ZOLOFT [Suspect]
     Active Substance: SERTRALINE HYDROCHLORIDE
  4. ROBAXIN [Suspect]
     Active Substance: METHOCARBAMOL
  5. PERCOCET [Suspect]
     Active Substance: ACETAMINOPHEN\OXYCODONE HYDROCHLORIDE
  6. GABAPENTIN. [Suspect]
     Active Substance: GABAPENTIN

REACTIONS (18)
  - Fatigue [None]
  - Pyrexia [None]
  - Dyspnoea [None]
  - Nausea [None]
  - Pain [None]
  - Dizziness [None]
  - Hypoaesthesia [None]
  - Chills [None]
  - Impaired work ability [None]
  - Weight decreased [None]
  - Chest pain [None]
  - Lymph node pain [None]
  - Gastrointestinal disorder [None]
  - Feeling abnormal [None]
  - Burning sensation [None]
  - Headache [None]
  - Hypertension [None]
  - Arrhythmia [None]

NARRATIVE: CASE EVENT DATE: 20160201
